FAERS Safety Report 9099989 (Version 2)
Quarter: 2013Q1

REPORT INFORMATION
  Report Type: Spontaneous
  Country: US (occurrence: US)
  Receive Date: 20130214
  Receipt Date: 20130219
  Transmission Date: 20140127
  Serious: Yes (Hospitalization)
  Sender: FDA-Public Use
  Company Number: US-GILEAD-2013-0069702

PATIENT
  Sex: Female

DRUGS (2)
  1. LETAIRIS [Suspect]
     Indication: SYSTEMIC SCLEROSIS
     Dosage: 5 MG, QD
     Dates: start: 20101203
  2. REVATIO [Concomitant]

REACTIONS (2)
  - Gastric ulcer haemorrhage [Unknown]
  - Syncope [Unknown]
